FAERS Safety Report 9765151 (Version 1)
Quarter: 2013Q4

REPORT INFORMATION
  Report Type: Spontaneous
  Country: FR (occurrence: FR)
  Receive Date: 20131217
  Receipt Date: 20131217
  Transmission Date: 20140711
  Serious: Yes (Life-Threatening, Other)
  Sender: FDA-Public Use
  Company Number: FR-009507513-1312FRA004419

PATIENT
  Age: 72 Year
  Sex: Female

DRUGS (14)
  1. JANUMET [Suspect]
     Indication: TYPE 2 DIABETES MELLITUS
     Dosage: 1 DF, BID
     Route: 048
     Dates: start: 20130622
  2. REPAGLINIDE [Suspect]
     Indication: TYPE 2 DIABETES MELLITUS
     Dosage: 2 MG, TID
     Route: 048
  3. METFORMIN [Suspect]
     Indication: TYPE 2 DIABETES MELLITUS
     Dosage: 1000 MG, QD
     Route: 048
  4. LOXEN [Suspect]
     Indication: HYPERTENSION
     Dosage: 1 DF, BID
     Route: 048
  5. DIFFU-K [Suspect]
     Dosage: 600 MG, BID
     Route: 048
  6. LASILIX [Suspect]
     Route: 048
  7. CELIPROLOL HYDROCHLORIDE [Suspect]
     Indication: HYPERTENSION
     Dosage: 200 MG, BID
     Route: 048
  8. ALLOPURINOL [Suspect]
     Dosage: 200 MG, QD
     Route: 048
  9. LEVOTHYROX [Suspect]
     Indication: HYPOTHYROIDISM
     Dosage: 1 DF, QD
     Route: 048
  10. TARDYFERON B9 [Suspect]
     Dosage: 1 DF, BID
     Route: 048
  11. DAFALGAN [Suspect]
     Dosage: 4 G, QD
     Route: 048
  12. OMEPRAZOLE [Suspect]
     Route: 048
  13. STILNOX [Suspect]
     Dosage: 10 MG, QD
     Route: 048
  14. BICIRKAN [Suspect]
     Dosage: 1 DF, BID
     Route: 048

REACTIONS (1)
  - Pancreatic carcinoma metastatic [Not Recovered/Not Resolved]
